FAERS Safety Report 25607630 (Version 4)
Quarter: 2025Q4

REPORT INFORMATION
  Report Type: Report from Study
  Country: US (occurrence: US)
  Receive Date: 20250725
  Receipt Date: 20251001
  Transmission Date: 20260117
  Serious: Yes (Hospitalization, Other)
  Sender: ALEXION PHARMACEUTICALS
  Company Number: US-AstraZeneca-CH-00913845A

PATIENT
  Age: 60 Year
  Sex: Female

DRUGS (2)
  1. STRENSIQ [Suspect]
     Active Substance: ASFOTASE ALFA
     Indication: Hypophosphatasia
     Dosage: UNK
  2. GAMMAGARD [Suspect]
     Active Substance: HUMAN IMMUNOGLOBULIN G
     Dosage: UNK
     Route: 065

REACTIONS (11)
  - Bradycardia [Unknown]
  - Anaphylactic reaction [Unknown]
  - Loss of consciousness [Unknown]
  - Tremor [Unknown]
  - Gait disturbance [Unknown]
  - Confusional state [Unknown]
  - Dysarthria [Unknown]
  - Transient ischaemic attack [Unknown]
  - Addison^s disease [Unknown]
  - Migraine [Unknown]
  - Secondary adrenocortical insufficiency [Unknown]

NARRATIVE: CASE EVENT DATE: 20250410
